FAERS Safety Report 4435694-8 (Version None)
Quarter: 2004Q3

REPORT INFORMATION
  Report Type: 
  Country: None (occurrence: None)
  Receive Date: 20040726
  Receipt Date: 20040423
  Transmission Date: 20050211
  Serious: No
  Sender: FDA-Public Use
  Company Number: USA040465661

PATIENT
  Age: 75 Year
  Sex: Male
  Weight: 68 kg

DRUGS (8)
  1. FORTEO [Suspect]
     Indication: OSTEOPOROSIS
     Dosage: 20 UG/1 DAY
     Dates: start: 20040101
  2. PREDNISONE [Concomitant]
  3. COZAAR (LASARTAN POTASSIUM) [Concomitant]
  4. FUROSEMIDE [Concomitant]
  5. TERAZOSIN HCL [Concomitant]
  6. CALCIUM [Concomitant]
  7. MULTIVITAMIN [Concomitant]
  8. CLACITONIN [Concomitant]

REACTIONS (1)
  - NERVOUSNESS [None]
